FAERS Safety Report 24199127 (Version 1)
Quarter: 2024Q3

REPORT INFORMATION
  Report Type: Report from Study
  Country: IE (occurrence: IE)
  Receive Date: 20240812
  Receipt Date: 20240812
  Transmission Date: 20241017
  Serious: Yes (Other)
  Sender: JOHNSON AND JOHNSON
  Company Number: IE-JNJFOC-20240819741

PATIENT
  Age: 83 Year
  Sex: Male

DRUGS (6)
  1. ZYTIGA [Suspect]
     Active Substance: ABIRATERONE ACETATE
     Indication: Prostate cancer
     Route: 048
     Dates: start: 20210224
  2. PREDNISOLONE [Concomitant]
     Active Substance: PREDNISOLONE
     Route: 050
  3. OMEPRAZOLE [Concomitant]
     Active Substance: OMEPRAZOLE
     Route: 050
  4. AMLODIPINE [Concomitant]
     Active Substance: AMLODIPINE BESYLATE
     Route: 050
  5. ZOPICLONE [Concomitant]
     Active Substance: ZOPICLONE
     Route: 050
  6. SERC [THIORIDAZINE] [Concomitant]
     Route: 050

REACTIONS (4)
  - Prostatic operation [Unknown]
  - Blood urine present [Not Recovered/Not Resolved]
  - Swelling face [Not Recovered/Not Resolved]
  - Oedema peripheral [Not Recovered/Not Resolved]

NARRATIVE: CASE EVENT DATE: 20240611
